FAERS Safety Report 9857402 (Version 10)
Quarter: 2014Q2

REPORT INFORMATION
  Report Type: Report from Study
  Country: CA (occurrence: CA)
  Receive Date: 20140131
  Receipt Date: 20140603
  Transmission Date: 20141212
  Serious: Yes (Other)
  Sender: FDA-Public Use
  Company Number: CA-ROCHE-1336934

PATIENT
  Age: 54 Year
  Sex: Female
  Weight: 83.8 kg

DRUGS (7)
  1. AVASTIN [Suspect]
     Indication: GLIOBLASTOMA
     Route: 042
     Dates: start: 20131221
  2. AVASTIN [Suspect]
     Route: 065
     Dates: start: 20140215
  3. AVASTIN [Suspect]
     Route: 065
     Dates: start: 20140409, end: 20140510
  4. NEXIUM [Concomitant]
  5. DECADRON [Concomitant]
     Dosage: HAVE BEGUN THE TAPER TO DISCONTINUATION
     Route: 065
  6. DILANTIN [Concomitant]
  7. FRAGMIN [Concomitant]

REACTIONS (14)
  - Gastrooesophageal reflux disease [Unknown]
  - Haemorrhoids [Unknown]
  - Neoplasm [Recovered/Resolved]
  - Blood pressure increased [Unknown]
  - Muscular weakness [Not Recovered/Not Resolved]
  - Headache [Recovered/Resolved]
  - Nausea [Recovered/Resolved]
  - Diarrhoea [Unknown]
  - Abdominal pain [Recovered/Resolved]
  - Glossodynia [Not Recovered/Not Resolved]
  - Stomatitis [Not Recovered/Not Resolved]
  - Blood potassium abnormal [Unknown]
  - Back pain [Recovering/Resolving]
  - Malignant neoplasm progression [Not Recovered/Not Resolved]
